FAERS Safety Report 21294380 (Version 4)
Quarter: 2022Q4

REPORT INFORMATION
  Report Type: Report from Study
  Country: RU (occurrence: RU)
  Receive Date: 20220905
  Receipt Date: 20221018
  Transmission Date: 20230113
  Serious: Yes (Hospitalization, Other)
  Sender: FDA-Public Use
  Company Number: RU-TEVA-2022-RU-2069021

PATIENT
  Age: 53 Year
  Sex: Female

DRUGS (2)
  1. AJOVY [Suspect]
     Active Substance: FREMANEZUMAB-VFRM
     Indication: Migraine
     Route: 058
     Dates: start: 20220605
  2. SUMATRIPTAN [Suspect]
     Active Substance: SUMATRIPTAN
     Indication: Migraine
     Dosage: 200 MILLIGRAM DAILY;
     Route: 048
     Dates: start: 202206

REACTIONS (9)
  - Sympathetic posterior cervical syndrome [Recovered/Resolved]
  - Drug dependence [Recovered/Resolved]
  - Headache [Recovered/Resolved]
  - Drug ineffective [Unknown]
  - Neck pain [Recovered/Resolved]
  - Headache [Unknown]
  - Photophobia [Unknown]
  - Phonophobia [Unknown]
  - Heart rate irregular [Unknown]
